FAERS Safety Report 4880660-1 (Version None)
Quarter: 2006Q1

REPORT INFORMATION
  Report Type: 
  Country: None (occurrence: None)
  Receive Date: 20060113
  Receipt Date: 20050607
  Transmission Date: 20060701
  Serious: Yes (Hospitalization, Disabling)
  Sender: FDA-Public Use
  Company Number: US-MERCK-0506USA01117

PATIENT
  Age: 68 Year
  Sex: Female
  Weight: 105 kg

DRUGS (5)
  1. PROCARDIA [Concomitant]
     Route: 065
  2. DIOVAN [Concomitant]
     Route: 065
  3. HYDRODIURIL [Concomitant]
     Route: 048
  4. ATENOLOL [Concomitant]
     Route: 065
  5. VIOXX [Suspect]
     Indication: ARTHRALGIA
     Route: 048
     Dates: start: 19980101, end: 20031212

REACTIONS (2)
  - JOINT INJURY [None]
  - PULMONARY EMBOLISM [None]
